FAERS Safety Report 7263240-2 (Version None)
Quarter: 2011Q1

REPORT INFORMATION
  Report Type: 
  Country: None (occurrence: None)
  Receive Date: 20110130
  Receipt Date: 20101109
  Transmission Date: 20110831
  Serious: Yes (Hospitalization, Other)
  Sender: FDA-Public Use
  Company Number: US-ABBOTT-10P-163-0678253-00

PATIENT
  Sex: Female
  Weight: 63.56 kg

DRUGS (3)
  1. HUMIRA [Suspect]
     Route: 058
     Dates: start: 20101006
  2. HUMIRA [Suspect]
     Indication: CROHN'S DISEASE
     Route: 058
     Dates: start: 20070101, end: 20100927
  3. HUMIRA [Suspect]
     Route: 058
     Dates: start: 20101001, end: 20101006

REACTIONS (5)
  - SINUS DISORDER [None]
  - PYREXIA [None]
  - INCISIONAL DRAINAGE [None]
  - RECTAL ABSCESS [None]
  - FISTULA [None]
